FAERS Safety Report 6538621-2 (Version None)
Quarter: 2010Q1

REPORT INFORMATION
  Report Type: 
  Country: None (occurrence: None)
  Receive Date: 20100114
  Receipt Date: 20100114
  Transmission Date: 20100710
  Serious: Yes (Hospitalization)
  Sender: FDA-Public Use
  Company Number: None

PATIENT
  Sex: Male

DRUGS (9)
  1. TORISEL [Suspect]
     Indication: PROSTATE CANCER
     Dosage: 25 MG ONCE/WEEK IV
     Route: 042
     Dates: start: 20090903
  2. DIPHENHYDRAMINE [Concomitant]
  3. SIMVASTIN [Concomitant]
  4. CARBIDOPA-LEVODOPA [Concomitant]
  5. ASPIRIN [Concomitant]
  6. COMTAN [Concomitant]
  7. MULTIVITAMIN [Concomitant]
  8. CALCIUM [Concomitant]
  9. OMEPRAZOLE [Concomitant]

REACTIONS (1)
  - TRANSIENT ISCHAEMIC ATTACK [None]
